FAERS Safety Report 10053713 (Version 1)
Quarter: 2014Q2

REPORT INFORMATION
  Report Type: Report from Study
  Country: AU (occurrence: AU)
  Receive Date: 20140402
  Receipt Date: 20140402
  Transmission Date: 20141212
  Serious: Yes (Hospitalization, Other)
  Sender: FDA-Public Use
  Company Number: PHHY2014AU038890

PATIENT
  Sex: Female

DRUGS (1)
  1. CLOZARIL [Suspect]
     Dosage: 150 MG, DAILY
     Route: 048

REACTIONS (3)
  - Anaemia [Unknown]
  - Antipsychotic drug level increased [Unknown]
  - Drug level fluctuating [Unknown]
